FAERS Safety Report 8077416-8 (Version None)
Quarter: 2012Q1

REPORT INFORMATION
  Report Type: 
  Country: None (occurrence: None)
  Receive Date: 20120127
  Receipt Date: 20120122
  Transmission Date: 20120608
  Serious: Yes (Hospitalization)
  Sender: FDA-Public Use
  Company Number: PHHY2012IN005951

PATIENT
  Age: 75 Year
  Sex: Male

DRUGS (1)
  1. ZOLEDRONOC ACID [Suspect]
     Route: 042

REACTIONS (1)
  - FRACTURE [None]
